FAERS Safety Report 10092542 (Version 1)
Quarter: 2014Q2

REPORT INFORMATION
  Report Type: Spontaneous
  Country: US (occurrence: US)
  Receive Date: 20140421
  Receipt Date: 20140421
  Transmission Date: 20141212
  Serious: No
  Sender: FDA-Public Use
  Company Number: US-SANOFI-AVENTIS-2013SA045100

PATIENT
  Age: 34 Year
  Sex: Male

DRUGS (4)
  1. ALLEGRA [Suspect]
     Indication: UPPER-AIRWAY COUGH SYNDROME
     Dates: start: 201212
  2. ALLEGRA [Suspect]
     Indication: UPPER-AIRWAY COUGH SYNDROME
     Dates: start: 20130408
  3. ALLEGRA [Suspect]
     Indication: UPPER-AIRWAY COUGH SYNDROME
     Dates: start: 20130409
  4. NAPROXEN [Concomitant]
     Indication: HEADACHE

REACTIONS (2)
  - Dysgeusia [Unknown]
  - Headache [Recovered/Resolved]
